FAERS Safety Report 19771706 (Version 1)
Quarter: 2021Q3

REPORT INFORMATION
  Report Type: Spontaneous
  Country: US (occurrence: US)
  Receive Date: 20210901
  Receipt Date: 20210901
  Transmission Date: 20211014
  Serious: Yes (Hospitalization)
  Sender: FDA-Public Use
  Company Number: None

PATIENT
  Age: 45 Year
  Sex: Female
  Weight: 98.1 kg

DRUGS (2)
  1. MEKINIST [Suspect]
     Active Substance: TRAMETINIB DIMETHYL SULFOXIDE
     Indication: METASTATIC MALIGNANT MELANOMA
     Route: 048
     Dates: start: 20210705, end: 20210727
  2. TAFINLAR [Suspect]
     Active Substance: DABRAFENIB MESYLATE
     Indication: METASTATIC MALIGNANT MELANOMA
     Route: 048
     Dates: start: 20210705, end: 20210727

REACTIONS (7)
  - Vision blurred [None]
  - Vitreous floaters [None]
  - Eye pain [None]
  - Uveitis [None]
  - Meningitis aseptic [None]
  - Febrile neutropenia [None]
  - Meningitis bacterial [None]

NARRATIVE: CASE EVENT DATE: 20210729
